FAERS Safety Report 22818497 (Version 2)
Quarter: 2025Q4

REPORT INFORMATION
  Report Type: Spontaneous
  Country: EU (occurrence: EU)
  Receive Date: 20230814
  Receipt Date: 20251112
  Transmission Date: 20260118
  Serious: Yes (Hospitalization, Other)
  Sender: MSN LABORATORIES PRIVATE LIMITED
  Company Number: EU-002147023-NVSC2023DE164623

PATIENT

DRUGS (5)
  1. ATORVASTATIN [Suspect]
     Active Substance: ATORVASTATIN
     Indication: Type IIa hyperlipidaemia
     Dosage: UNK
     Route: 065
     Dates: start: 2023
  2. ATORVASTATIN [Suspect]
     Active Substance: ATORVASTATIN
     Dosage: ONCE A DAY (QD) (0-0-1)
     Route: 065
     Dates: start: 2001
  3. LEQVIO [Suspect]
     Active Substance: INCLISIRAN SODIUM
     Indication: Type IIa hyperlipidaemia
     Dosage: UNK
     Route: 065
     Dates: start: 20230427, end: 20230427
  4. CIPROFLOXACIN [Concomitant]
     Active Substance: CIPROFLOXACIN
     Dosage: UNK
     Route: 065
     Dates: start: 20230702, end: 20230706
  5. ENOXAPARIN [Concomitant]
     Active Substance: ENOXAPARIN
     Indication: Product used for unknown indication
     Dosage: UNK, (8000 IE)
     Route: 065

REACTIONS (21)
  - Sensory disturbance [Not Recovered/Not Resolved]
  - Discharge [Recovered/Resolved]
  - Wound [Recovered/Resolved]
  - Scar [Unknown]
  - Graft complication [Recovered/Resolved]
  - Gait disturbance [Not Recovered/Not Resolved]
  - Foot deformity [Recovering/Resolving]
  - Cold sweat [Recovering/Resolving]
  - Burning sensation [Not Recovered/Not Resolved]
  - Hypoaesthesia [Not Recovered/Not Resolved]
  - Skin ulcer [Not Recovered/Not Resolved]
  - Peripheral swelling [Not Recovered/Not Resolved]
  - Erythema [Not Recovered/Not Resolved]
  - Pruritus [Recovering/Resolving]
  - Muscle spasms [Recovering/Resolving]
  - Pain in extremity [Not Recovered/Not Resolved]
  - Wound complication [Recovered/Resolved]
  - Wound infection [Unknown]
  - Arthralgia [Unknown]
  - Hypersensitivity [Not Recovered/Not Resolved]
  - Aspartate aminotransferase increased [Recovered/Resolved]

NARRATIVE: CASE EVENT DATE: 20230501
